FAERS Safety Report 7390599-8 (Version None)
Quarter: 2011Q2

REPORT INFORMATION
  Report Type: 
  Country: None (occurrence: None)
  Receive Date: 20110404
  Receipt Date: 20110323
  Transmission Date: 20111010
  Serious: Yes (Hospitalization, Other)
  Sender: FDA-Public Use
  Company Number: US-BIOGENIDEC-2009BI039960

PATIENT
  Age: 47 Year
  Sex: Female
  Weight: 63 kg

DRUGS (2)
  1. AVONEX [Suspect]
     Route: 030
     Dates: start: 20100904
  2. AVONEX [Suspect]
     Indication: MULTIPLE SCLEROSIS
     Route: 030
     Dates: start: 20090313, end: 20100101

REACTIONS (3)
  - TUMOUR EXCISION [None]
  - BENIGN BREAST NEOPLASM [None]
  - BONE NEOPLASM MALIGNANT [None]
